FAERS Safety Report 6395959-X (Version None)
Quarter: 2009Q4

REPORT INFORMATION
  Report Type: 
  Country: None (occurrence: None)
  Receive Date: 20091009
  Receipt Date: 20090930
  Transmission Date: 20100525
  Serious: Yes (Disabling)
  Sender: FDA-Public Use
  Company Number: PHHY2009GB42388

PATIENT
  Age: 42 Year
  Sex: Male

DRUGS (5)
  1. TERBINAFINE HCL [Suspect]
     Indication: ONYCHOMYCOSIS
     Dosage: UNK
     Route: 048
     Dates: start: 20080609, end: 20080624
  2. FLUOCINONIDE [Concomitant]
     Indication: ECZEMA
     Dosage: UNK
     Route: 061
  3. MOMETASONE FUROATE [Concomitant]
     Indication: ECZEMA
     Dosage: UNK
     Route: 061
  4. QVAR 40 [Concomitant]
     Indication: ASTHMA
     Dosage: 2 DF, QD
  5. ALBUTEROL [Concomitant]
     Indication: ASTHMA
     Dosage: 2 DF 1/4 HOURS

REACTIONS (5)
  - BLOOD CREATINE PHOSPHOKINASE INCREASED [None]
  - FATIGUE [None]
  - MITOCHONDRIAL MYOPATHY [None]
  - MYALGIA [None]
  - RASH [None]
